FAERS Safety Report 17671787 (Version 2)
Quarter: 2020Q3

REPORT INFORMATION
  Report Type: Not Available
  Country: US (occurrence: US)
  Receive Date: 20200415
  Receipt Date: 20200708
  Transmission Date: 20201102
  Serious: No
  Sender: FDA-Public Use
  Company Number: US-NEUROCRINE BIOSCIENCES INC.-2020NBI01190

PATIENT
  Age: 49 Year
  Sex: Male

DRUGS (1)
  1. INGREZZA [Suspect]
     Active Substance: VALBENAZINE
     Indication: TARDIVE DYSKINESIA
     Route: 048
     Dates: start: 20190406

REACTIONS (6)
  - Therapeutic product effect incomplete [Unknown]
  - Dizziness [Unknown]
  - Insomnia [Unknown]
  - Malaise [Unknown]
  - Apathy [Unknown]
  - Fatigue [Unknown]
